FAERS Safety Report 25287755 (Version 1)
Quarter: 2025Q2

REPORT INFORMATION
  Report Type: Spontaneous
  Country: US (occurrence: US)
  Receive Date: 20250509
  Receipt Date: 20250509
  Transmission Date: 20250717
  Serious: Yes (Death)
  Sender: ABBVIE
  Company Number: US-ABBVIE-6273879

PATIENT
  Sex: Female

DRUGS (1)
  1. HUMIRA [Suspect]
     Active Substance: ADALIMUMAB
     Indication: Maternal exposure timing unspecified
     Route: 064

REACTIONS (5)
  - Sudden infant death syndrome [Fatal]
  - Foetal exposure during pregnancy [Unknown]
  - Multiple allergies [Recovering/Resolving]
  - Pruritus [Unknown]
  - Eczema [Recovering/Resolving]
